FAERS Safety Report 6858055-0 (Version None)
Quarter: 2010Q3

REPORT INFORMATION
  Report Type: 
  Country: None (occurrence: None)
  Receive Date: 20100719
  Receipt Date: 20100707
  Transmission Date: 20110219
  Serious: Yes (Death)
  Sender: FDA-Public Use
  Company Number: GB-PFIZER INC-2010080916

PATIENT
  Age: 51 Year
  Sex: Female

DRUGS (19)
  1. SUNITINIB MALATE [Suspect]
     Indication: MALIGNANT NEOPLASM OF ISLETS OF LANGERHANS
     Dosage: 50 MG, 1X/DAY
     Route: 048
     Dates: start: 20081209, end: 20100601
  2. CYCLIZINE [Concomitant]
     Indication: NAUSEA
     Dosage: 50 MG, 3X/DAY
     Route: 048
     Dates: start: 20090424
  3. ONDANSETRON [Concomitant]
     Indication: NAUSEA
     Dosage: 4 MG, 2X/DAY
     Route: 048
  4. DOMPERIDONE [Concomitant]
     Indication: NAUSEA
     Dosage: 10-20 MG FOUR TIMES DAILY
     Route: 048
  5. PROPANTHELINE [Concomitant]
     Indication: MUSCLE SPASMS
     Dosage: 15 MG, 3X/DAY
     Route: 048
     Dates: start: 20100525
  6. METOCLOPRAMIDE [Concomitant]
     Indication: NAUSEA
     Dosage: 10 MG, 3X/DAY
     Route: 048
     Dates: start: 20100517
  7. FERSAMAL [Concomitant]
     Indication: HAEMATEMESIS
     Dosage: 210 MG, 3X/DAY
     Dates: start: 20100606
  8. MIRTAZAPINE [Concomitant]
     Indication: DEPRESSION
     Dosage: 15 MG, 1X/DAY
     Route: 048
     Dates: start: 20091029
  9. PROMETHAZINE [Concomitant]
     Indication: NAUSEA
     Dosage: 25 MG, 4X/DAY
     Route: 048
     Dates: start: 20091029
  10. MORPHINE [Concomitant]
     Indication: PAIN
     Dosage: 5 MG, AS NEEDED
     Route: 058
     Dates: start: 20100525
  11. MORPHINE [Concomitant]
     Dosage: 40 MG, UNK
     Route: 058
  12. BUSCOPAN [Concomitant]
     Indication: MUSCLE SPASMS
     Dosage: 60 MG, UNK
     Route: 058
     Dates: start: 20100525
  13. FELODIPINE [Concomitant]
     Indication: HYPERTENSION
     Dosage: 2.5 MG, 1X/DAY
     Route: 048
     Dates: start: 20080929
  14. LORAZEPAM [Concomitant]
     Indication: ANXIETY
     Dosage: 1 MG, AS NEEDED
     Route: 048
     Dates: start: 20090213
  15. CALCICHEW [Concomitant]
     Indication: BLOOD CALCIUM DECREASED
     Dosage: 500 MG, 2X/DAY
     Route: 048
     Dates: start: 20090318
  16. PARACETAMOL [Concomitant]
     Indication: PAIN
     Dosage: 1 G, AS NEEDED
     Route: 054
     Dates: start: 20100525
  17. OMEPRAZOLE [Concomitant]
     Indication: GASTRIC ULCER
     Dosage: 40 MG, 2X/DAY
     Route: 048
     Dates: start: 20060101
  18. FENTANYL [Concomitant]
     Indication: PAIN
     Dosage: 800 UG, AS NEEDED
     Route: 048
     Dates: start: 20090217
  19. PROCHLORPERAZINE MALEATE [Concomitant]
     Indication: NAUSEA
     Dosage: 3-6 MG AS NEEDED
     Route: 002
     Dates: start: 20080929

REACTIONS (2)
  - DISEASE PROGRESSION [None]
  - NEUROENDOCRINE TUMOUR [None]
